FAERS Safety Report 18326852 (Version 1)
Quarter: 2020Q3

REPORT INFORMATION
  Report Type: Spontaneous
  Country: US (occurrence: US)
  Receive Date: 20200930
  Receipt Date: 20200930
  Transmission Date: 20201103
  Serious: No
  Sender: FDA-Public Use
  Company Number: US-JNJFOC-20200945338

PATIENT

DRUGS (1)
  1. ZYRTEC [Suspect]
     Active Substance: CETIRIZINE HYDROCHLORIDE
     Indication: PRODUCT USED FOR UNKNOWN INDICATION
     Dosage: TOOK ONE AROUND 2 ON SUNDAY AND YESTERDAY AT WORK ON MONDAY
     Route: 065
     Dates: start: 20200920

REACTIONS (2)
  - Sluggishness [Unknown]
  - Somnolence [Unknown]

NARRATIVE: CASE EVENT DATE: 20200920
